FAERS Safety Report 5975114-5 (Version None)
Quarter: 2008Q4

REPORT INFORMATION
  Report Type: 
  Country: None (occurrence: None)
  Receive Date: 20081202
  Receipt Date: 20081105
  Transmission Date: 20090506
  Serious: No
  Sender: FDA-Public Use
  Company Number: US-BAYER-200837690NA

PATIENT
  Age: 33 Year
  Sex: Female

DRUGS (2)
  1. MIRENA [Suspect]
     Indication: AMENORRHOEA
     Route: 015
  2. MIRENA [Suspect]
     Route: 015
     Dates: start: 20080901

REACTIONS (5)
  - ABDOMINAL PAIN [None]
  - DYSPAREUNIA [None]
  - IUCD COMPLICATION [None]
  - MEDICAL DEVICE PAIN [None]
  - PROCEDURAL PAIN [None]
